FAERS Safety Report 4559039-8 (Version None)
Quarter: 2005Q1

REPORT INFORMATION
  Report Type: 
  Country: None (occurrence: None)
  Receive Date: 20050124
  Receipt Date: 20050117
  Transmission Date: 20050727
  Serious: Yes (Death, Hospitalization)
  Sender: FDA-Public Use
  Company Number: DE-JNJFOC-20050101006

PATIENT
  Age: 59 Year
  Sex: Male

DRUGS (1)
  1. INFLIXIMAB [Suspect]
     Indication: POLYMYOSITIS
     Route: 042

REACTIONS (16)
  - ATRIAL FLUTTER [None]
  - BLOOD CULTURE POSITIVE [None]
  - BRONCHOPNEUMONIA [None]
  - CARDIOMEGALY [None]
  - CHEST PAIN [None]
  - FACE OEDEMA [None]
  - HEPATIC CONGESTION [None]
  - HYPOTENSION [None]
  - NECROTISING FASCIITIS [None]
  - PULMONARY CONGESTION [None]
  - RENAL DISORDER [None]
  - RESPIRATORY FAILURE [None]
  - SEPSIS [None]
  - SPLENITIS [None]
  - STREPTOCOCCAL INFECTION [None]
  - TUBERCULOSIS [None]
